FAERS Safety Report 24908477 (Version 2)
Quarter: 2025Q2

REPORT INFORMATION
  Report Type: Spontaneous
  Country: US (occurrence: US)
  Receive Date: 20250131
  Receipt Date: 20250501
  Transmission Date: 20250717
  Serious: No
  Sender: CHATTEM
  Company Number: US-OPELLA-2025OHG002590

PATIENT
  Age: 31 Year
  Sex: Female

DRUGS (2)
  1. XYZAL [Suspect]
     Active Substance: LEVOCETIRIZINE DIHYDROCHLORIDE
     Indication: Product used for unknown indication
  2. PEPCID [Concomitant]
     Active Substance: FAMOTIDINE
     Indication: Product used for unknown indication

REACTIONS (3)
  - Treatment failure [Unknown]
  - Inappropriate schedule of product administration [Unknown]
  - No adverse event [Unknown]
